FAERS Safety Report 7381607-9 (Version None)
Quarter: 2011Q1

REPORT INFORMATION
  Report Type: 
  Country: None (occurrence: None)
  Receive Date: 20110329
  Receipt Date: 20110317
  Transmission Date: 20110831
  Serious: Yes (Death)
  Sender: FDA-Public Use
  Company Number: JP-GILEAD-E2B_00000994

PATIENT
  Sex: Male
  Weight: 63 kg

DRUGS (25)
  1. PREDONINE [Concomitant]
     Route: 065
     Dates: end: 20101105
  2. ALDACTONE [Concomitant]
     Indication: PULMONARY ARTERIAL HYPERTENSION
     Route: 048
     Dates: end: 20101104
  3. METILDIGOXIN [Concomitant]
     Indication: PULMONARY ARTERIAL HYPERTENSION
     Route: 048
     Dates: start: 20101104, end: 20101108
  4. TPN ELECTROLYTES IN PLASTIC CONTAINER [Concomitant]
     Route: 042
     Dates: start: 20101104, end: 20101111
  5. DORMICUM [Concomitant]
     Indication: SEDATION
     Dates: start: 20101108, end: 20101111
  6. ENTERONON-R [Concomitant]
     Route: 048
  7. ARTIST [Concomitant]
     Indication: PULMONARY ARTERIAL HYPERTENSION
     Route: 048
     Dates: start: 20101105, end: 20101108
  8. FUROSEMIDE [Concomitant]
     Route: 065
     Dates: start: 20100120, end: 20101111
  9. ASPARA K [Concomitant]
     Route: 048
     Dates: start: 20101013, end: 20101026
  10. JUVELA [Concomitant]
     Route: 065
  11. WARFARIN [Concomitant]
     Indication: THROMBOSIS
     Route: 048
     Dates: end: 20101104
  12. AMBRISENTAN [Suspect]
     Indication: PULMONARY HYPERTENSION
     Dosage: 2.5MG PER DAY
     Route: 048
     Dates: start: 20101013, end: 20101108
  13. REVATIO [Concomitant]
     Indication: PULMONARY ARTERIAL HYPERTENSION
     Route: 048
     Dates: start: 20100312, end: 20101108
  14. SELENICA R [Concomitant]
     Route: 048
     Dates: end: 20101108
  15. BACTRIM [Concomitant]
     Indication: INFECTION PROPHYLAXIS
     Route: 048
     Dates: end: 20101108
  16. MUCOSIL-10 [Concomitant]
     Route: 048
     Dates: end: 20101104
  17. NEORAL [Concomitant]
     Route: 048
     Dates: start: 20101108
  18. FUROSEMIDE [Concomitant]
     Route: 048
     Dates: start: 20101020, end: 20101111
  19. SOLANAX [Concomitant]
     Route: 048
     Dates: end: 20101108
  20. OMEPRAL [Concomitant]
     Indication: PROPHYLAXIS
     Route: 048
     Dates: end: 20101103
  21. DIART [Concomitant]
     Indication: PULMONARY ARTERIAL HYPERTENSION
     Route: 048
     Dates: end: 20101104
  22. GASMOTIN [Concomitant]
     Route: 048
     Dates: end: 20101108
  23. BERAPROST SODIUM [Concomitant]
     Indication: PULMONARY ARTERIAL HYPERTENSION
     Route: 048
     Dates: start: 20100612, end: 20101104
  24. TRACLEER [Concomitant]
     Indication: PULMONARY ARTERIAL HYPERTENSION
     Route: 048
     Dates: start: 20100320, end: 20100607
  25. SLOW-K [Concomitant]
     Route: 048
     Dates: start: 20101027, end: 20101107

REACTIONS (2)
  - PNEUMOCYSTIS JIROVECI PNEUMONIA [None]
  - CARDIAC FAILURE [None]
